FAERS Safety Report 8093635-9 (Version None)
Quarter: 2012Q1

REPORT INFORMATION
  Report Type: 
  Country: None (occurrence: None)
  Receive Date: 20120129
  Receipt Date: 20111024
  Transmission Date: 20120608
  Serious: No
  Sender: FDA-Public Use
  Company Number: US-ABBOTT-11P-163-0859813-00

PATIENT
  Sex: Female

DRUGS (16)
  1. HUMIRA [Suspect]
     Indication: RHEUMATOID ARTHRITIS
     Dates: start: 20110728
  2. PAXIL [Concomitant]
     Indication: DEPRESSION
     Dosage: AT BEDTIME
  3. FENOFIBRATE [Concomitant]
     Indication: BLOOD CHOLESTEROL
  4. LYRICA [Concomitant]
     Indication: PRODUCT USED FOR UNKNOWN INDICATION
  5. BONIVA [Concomitant]
     Indication: PRODUCT USED FOR UNKNOWN INDICATION
  6. OXYCODONE HCL [Concomitant]
     Indication: PAIN
     Dosage: 10.325 MG
  7. ADVAIR DISKUS 100/50 [Concomitant]
     Indication: PRODUCT USED FOR UNKNOWN INDICATION
     Dosage: DISKUS 550- ONE PUFF TWICE A DAY
  8. CYMBALTA [Concomitant]
     Indication: DEPRESSION
  9. MIRAPEX [Concomitant]
     Indication: RESTLESS LEGS SYNDROME
     Dosage: 2 AT BEDTIME
  10. CLONAZEPAM [Concomitant]
     Indication: ANXIETY
     Dosage: TWICE A DAY
  11. ALDACTONE [Concomitant]
     Indication: DIURETIC THERAPY
  12. PLAVIX [Concomitant]
     Indication: CORONARY ARTERIAL STENT INSERTION
  13. CAPTOPRIL [Concomitant]
     Indication: HYPERTENSION
  14. COMBIVENT [Concomitant]
     Indication: EMPHYSEMA
     Dosage: TWICE PER DAY
     Route: 055
  15. ZOLOFT [Concomitant]
     Indication: PRODUCT USED FOR UNKNOWN INDICATION
  16. CYCLOBENZAPRINE HCL [Concomitant]
     Indication: MUSCLE RELAXANT THERAPY

REACTIONS (6)
  - RHEUMATOID ARTHRITIS [None]
  - PAIN [None]
  - MOBILITY DECREASED [None]
  - INJECTION SITE PAIN [None]
  - FATIGUE [None]
  - DRUG INEFFECTIVE [None]
